FAERS Safety Report 8169067-1 (Version None)
Quarter: 2012Q1

REPORT INFORMATION
  Report Type: 
  Country: None (occurrence: None)
  Receive Date: 20120227
  Receipt Date: 20120222
  Transmission Date: 20120608
  Serious: Yes (Life-Threatening, Hospitalization)
  Sender: FDA-Public Use
  Company Number: RU-ASTRAZENECA-2012SE12349

PATIENT
  Age: 22 Year
  Sex: Female

DRUGS (7)
  1. KETOROLAC TROMETHAMINE [Concomitant]
  2. DEXTROSE [Concomitant]
  3. METOCLOPRAMIDE [Concomitant]
  4. REOPOLYGLUCINE [Concomitant]
  5. RHEOPOLYGLUKIN [Concomitant]
  6. DIAZEPAM [Concomitant]
  7. MARCAINE [Suspect]
     Route: 037

REACTIONS (4)
  - HEADACHE [None]
  - NAUSEA [None]
  - VOMITING [None]
  - NEPHRITIS [None]
